FAERS Safety Report 9513355 (Version 1)
Quarter: 2013Q3

REPORT INFORMATION
  Report Type: Spontaneous
  Country: DE (occurrence: DE)
  Receive Date: 20130910
  Receipt Date: 20130910
  Transmission Date: 20140515
  Serious: Yes (Hospitalization)
  Sender: FDA-Public Use
  Company Number: DE-WATSON-2013-16036

PATIENT
  Age: 89 Year
  Sex: Male

DRUGS (7)
  1. SIMVASTATIN (UNKNOWN) [Suspect]
     Indication: CORONARY ARTERY DISEASE
     Dosage: 20 MG, DAILY
     Route: 048
     Dates: end: 20130724
  2. HCT [Concomitant]
     Indication: PRODUCT USED FOR UNKNOWN INDICATION
     Dosage: 12.5 MG, DAILY
     Route: 065
  3. RAMIPRIL [Concomitant]
     Indication: PRODUCT USED FOR UNKNOWN INDICATION
     Dosage: 10 MG, DAILY
     Route: 065
  4. FUROSEMIDE [Concomitant]
     Indication: PRODUCT USED FOR UNKNOWN INDICATION
     Dosage: 125 MG, DAILY
     Route: 065
  5. PANTOZOL                           /01263204/ [Concomitant]
     Indication: PRODUCT USED FOR UNKNOWN INDICATION
     Dosage: 20 MG, DAILY
     Route: 065
  6. MIXTARD                            /00806401/ [Concomitant]
     Indication: PRODUCT USED FOR UNKNOWN INDICATION
     Dosage: 24-0-12 IE
     Route: 065
  7. CANDESARTAN [Concomitant]
     Indication: PRODUCT USED FOR UNKNOWN INDICATION
     Dosage: 16 MG, DAILY
     Route: 065

REACTIONS (3)
  - Myoglobin blood increased [Recovering/Resolving]
  - Mobility decreased [Recovering/Resolving]
  - Blood creatine phosphokinase increased [Recovering/Resolving]
